FAERS Safety Report 6165805-8 (Version None)
Quarter: 2009Q2

REPORT INFORMATION
  Report Type: 
  Country: None (occurrence: None)
  Receive Date: 20090422
  Receipt Date: 20090409
  Transmission Date: 20091009
  Serious: Yes (Hospitalization, Other)
  Sender: FDA-Public Use
  Company Number: 230010M09DEU

PATIENT
  Age: 48 Year
  Sex: Female

DRUGS (1)
  1. REBIF [Suspect]
     Indication: MULTIPLE SCLEROSIS
     Dosage: 22, 3 IN 1 WEEKS, SUBCUTANEOUS
     Route: 058
     Dates: start: 20011101, end: 20090209

REACTIONS (8)
  - ATRIAL FLUTTER [None]
  - BASEDOW'S DISEASE [None]
  - HYPERHIDROSIS [None]
  - HYPERTHYROIDISM [None]
  - HYPOTHYROIDISM [None]
  - TACHYARRHYTHMIA [None]
  - TACHYCARDIA [None]
  - UPPER RESPIRATORY TRACT INFECTION [None]
